FAERS Safety Report 23319265 (Version 1)
Quarter: 2023Q4

REPORT INFORMATION
  Report Type: Spontaneous
  Country: JP (occurrence: JP)
  Receive Date: 20231220
  Receipt Date: 20231220
  Transmission Date: 20240109
  Serious: Yes (Hospitalization)
  Sender: FDA-Public Use
  Company Number: JP-STRIDES ARCOLAB LIMITED-2023SP018828

PATIENT
  Age: 33 Year
  Sex: Male

DRUGS (3)
  1. ZOLPIDEM [Suspect]
     Active Substance: ZOLPIDEM TARTRATE
     Indication: Product used for unknown indication
     Dosage: UNK, (10 YEARS WITH GRADUALLY INCREASING DOSAGE)
     Route: 065
  2. ZOLPIDEM [Suspect]
     Active Substance: ZOLPIDEM TARTRATE
     Dosage: UNK, (APPROXIMATELY 200MG/DAY)
     Route: 065
  3. ZOLPIDEM [Suspect]
     Active Substance: ZOLPIDEM TARTRATE
     Dosage: UNK, (RESTARTED AND TAPERED OFF )
     Route: 065

REACTIONS (9)
  - Disorientation [Unknown]
  - Irritability [Unknown]
  - Memory impairment [Unknown]
  - Drug withdrawal syndrome [Unknown]
  - Drug withdrawal convulsions [Recovered/Resolved]
  - Cognitive disorder [Unknown]
  - Agitation [Unknown]
  - Drug abuse [Unknown]
  - Intentional overdose [Unknown]
